FAERS Safety Report 7953717 (Version 3)
Quarter: 2012Q4

REPORT INFORMATION
  Report Type: 
  Country: US (occurrence: US)
  Receive Date: 20110520
  Receipt Date: 20121012
  Transmission Date: 20130627
  Serious: No
  Sender: FDA-Public Use
  Company Number: US-ASTRAZENECA-2011SE28786

PATIENT
  Age: 47 Year
  Sex: Female

DRUGS (13)
  1. ATENOLOL [Suspect]
     Route: 048
  2. NEXIUM [Suspect]
     Route: 048
  3. ADVAIR DISKUS [Concomitant]
  4. AMLODIPINE [Concomitant]
     Route: 048
  5. CLONIDINE [Concomitant]
     Route: 048
  6. COLCRYS [Concomitant]
     Route: 048
  7. COLCRYS [Concomitant]
     Dosage: ONE TABLET IN ONE HOUR ONE TIME PER DAY AS REQUIRED
     Route: 048
  8. PREDNISONE [Concomitant]
     Route: 048
  9. PREDNISONE [Concomitant]
     Route: 048
  10. PREDNISONE [Concomitant]
     Route: 048
  11. PREDNISONE [Concomitant]
     Route: 048
  12. PRO AIR HFA [Concomitant]
     Indication: WHEEZING
     Dosage: TWO PUFFS  FOUR TIMES A DAY
  13. TRAMADOL [Concomitant]
     Route: 048

REACTIONS (2)
  - Renal disorder [Unknown]
  - Arthralgia [Unknown]
